FAERS Safety Report 14125844 (Version 1)
Quarter: 2017Q4

REPORT INFORMATION
  Report Type: Spontaneous
  Country: US (occurrence: US)
  Receive Date: 20171025
  Receipt Date: 20171025
  Transmission Date: 20180321
  Serious: No
  Sender: FDA-Public Use
  Company Number: US-BAYER-2017-204247

PATIENT
  Age: 61 Year
  Sex: Female
  Weight: 73 kg

DRUGS (4)
  1. VIACTIV [CALCIUM,COLECALCIFEROL] [Concomitant]
  2. ALEVE [Suspect]
     Active Substance: NAPROXEN SODIUM
     Indication: PAIN
     Dosage: 1 DF, BID
     Route: 048
  3. VITAMIN C [Concomitant]
     Active Substance: ASCORBIC ACID
  4. GLUCOSAMINE [GLUCOSAMINE] [Concomitant]

REACTIONS (2)
  - Product use issue [Unknown]
  - Inappropriate prescribing [Unknown]
